FAERS Safety Report 5040385-9 (Version None)
Quarter: 2006Q2

REPORT INFORMATION
  Report Type: 
  Country: None (occurrence: None)
  Receive Date: 20060630
  Receipt Date: 20050707
  Transmission Date: 20061013
  Serious: Yes (Hospitalization)
  Sender: FDA-Public Use
  Company Number: US-GLAXOSMITHKLINE-A0565330A

PATIENT
  Age: 89 Year
  Sex: Female

DRUGS (3)
  1. AVANDIA [Suspect]
     Indication: DIABETES MELLITUS NON-INSULIN-DEPENDENT
     Dosage: 4MG PER DAY
     Route: 048
  2. DIABETA [Suspect]
  3. MULTIPLE MEDICATIONS [Concomitant]

REACTIONS (2)
  - BLOOD GLUCOSE INCREASED [None]
  - PAIN [None]
